FAERS Safety Report 6059067-X (Version None)
Quarter: 2009Q1

REPORT INFORMATION
  Report Type: 
  Country: None (occurrence: None)
  Receive Date: 20090130
  Receipt Date: 20090121
  Transmission Date: 20090719
  Serious: Yes (Hospitalization)
  Sender: FDA-Public Use
  Company Number: B0555339A

PATIENT
  Age: 64 Year
  Sex: Female

DRUGS (11)
  1. AUGMENTIN '125' [Suspect]
     Dosage: 3G PER DAY
     Route: 042
     Dates: start: 20081112, end: 20081116
  2. YONDELIS [Suspect]
     Indication: SARCOMA UTERUS
     Route: 042
     Dates: start: 20081112, end: 20081113
  3. SOLU-MEDROL [Suspect]
     Route: 042
     Dates: start: 20081110, end: 20081113
  4. PRIMPERAN TAB [Suspect]
     Route: 042
     Dates: start: 20081110, end: 20081113
  5. DURAGESIC-100 [Concomitant]
     Route: 065
  6. ACTISKENAN [Concomitant]
     Route: 048
  7. ALTEIS [Concomitant]
  8. PARIET [Concomitant]
  9. SERTRALINE [Concomitant]
  10. LYRICA [Concomitant]
  11. DURAGESIC-100 [Concomitant]
     Dates: start: 20081113, end: 20081126

REACTIONS (3)
  - FATIGUE [None]
  - HYPERSOMNIA [None]
  - HYPOTENSION [None]
